FAERS Safety Report 4777057-1 (Version None)
Quarter: 2005Q3

REPORT INFORMATION
  Report Type: 
  Country: None (occurrence: None)
  Receive Date: 20050921
  Receipt Date: 20050908
  Transmission Date: 20060218
  Serious: Yes (Hospitalization)
  Sender: FDA-Public Use
  Company Number: 201614

PATIENT
  Age: 67 Year
  Sex: Female
  Weight: 90.7194 kg

DRUGS (11)
  1. AVONEX [Suspect]
     Indication: MULTIPLE SCLEROSIS
     Dosage: 30 UG; QW; IM
     Route: 030
     Dates: start: 19960101, end: 20030101
  2. AVONEX [Suspect]
     Indication: MULTIPLE SCLEROSIS
     Dosage: 30 UG; QW; IM
     Route: 030
     Dates: start: 20030101
  3. BACLOFEN [Concomitant]
  4. VITAMINS [Concomitant]
  5. MELATONIN [Concomitant]
  6. TYLENOL (CAPLET) [Concomitant]
  7. ASCORBIC ACID [Concomitant]
  8. VITAMIN B COMPLEX CAP [Concomitant]
  9. BETA CAROTENE [Concomitant]
  10. EVISTA [Concomitant]
  11. ASPIRIN [Concomitant]

REACTIONS (16)
  - ARTHROPATHY [None]
  - ASTHENIA [None]
  - BREAST CANCER FEMALE [None]
  - BURNING SENSATION [None]
  - BUTTOCK PAIN [None]
  - COUGH [None]
  - DEPRESSION [None]
  - DIZZINESS [None]
  - HEPATIC STEATOSIS [None]
  - HYPERLIPIDAEMIA [None]
  - INSOMNIA [None]
  - MICTURITION URGENCY [None]
  - OEDEMA PERIPHERAL [None]
  - PAIN [None]
  - URINARY INCONTINENCE [None]
  - WEIGHT INCREASED [None]
